FAERS Safety Report 4449088-2 (Version None)
Quarter: 2004Q3

REPORT INFORMATION
  Report Type: 
  Country: None (occurrence: None)
  Receive Date: 20040910
  Receipt Date: 20040831
  Transmission Date: 20050211
  Serious: Yes (Hospitalization)
  Sender: FDA-Public Use
  Company Number: 2004230000DE

PATIENT
  Age: 75 Year
  Sex: Female
  Weight: 74.4 kg

DRUGS (4)
  1. BEXTRA [Suspect]
     Indication: OSTEOARTHRITIS
     Dosage: 20 MG, QD, ORAL
     Route: 048
     Dates: start: 20040715
  2. TRIMIPRAMINE MALEATE [Suspect]
     Indication: POLYARTHRITIS
  3. VALORON N [Concomitant]
  4. CORTISONE (CORTISONE) [Concomitant]

REACTIONS (4)
  - BLOOD PRESSURE INCREASED [None]
  - DRUG ERUPTION [None]
  - ERYTHEMA MULTIFORME [None]
  - UNEVALUABLE EVENT [None]
